FAERS Safety Report 7311537-X (Version None)
Quarter: 2011Q1

REPORT INFORMATION
  Report Type: 
  Country: None (occurrence: None)
  Receive Date: 20110224
  Receipt Date: 20110217
  Transmission Date: 20110831
  Serious: Yes (Hospitalization)
  Sender: FDA-Public Use
  Company Number: US-PFIZER INC-2011036115

PATIENT
  Sex: Female

DRUGS (3)
  1. TYLENOL [Concomitant]
     Dosage: UNK
  2. HYDROCORTISONE [Concomitant]
     Dosage: UNK
  3. LYRICA [Suspect]
     Indication: PAIN
     Dosage: 50 MG, DAILY
     Route: 048
     Dates: start: 20101201

REACTIONS (8)
  - PANIC ATTACK [None]
  - DYSKINESIA [None]
  - FALL [None]
  - HYPOAESTHESIA [None]
  - FATIGUE [None]
  - PALPITATIONS [None]
  - PARAESTHESIA [None]
  - INSOMNIA [None]
